FAERS Safety Report 9123171 (Version 1)
Quarter: 2013Q1

REPORT INFORMATION
  Report Type: Spontaneous
  Country: IT (occurrence: IT)
  Receive Date: 20130227
  Receipt Date: 20130227
  Transmission Date: 20140127
  Serious: Yes (Hospitalization)
  Sender: FDA-Public Use
  Company Number: IT-SANOFI-AVENTIS-2013SA015188

PATIENT
  Age: 72 Year
  Sex: Male

DRUGS (3)
  1. STILNOX [Suspect]
     Indication: INSOMNIA
     Route: 048
     Dates: start: 20130130, end: 20130130
  2. AMOXICILLIN/CLAVULANIC ACID [Concomitant]
     Route: 042
  3. PENTACOL [Concomitant]
     Route: 048

REACTIONS (4)
  - Urinary incontinence [Recovered/Resolved]
  - Clonus [Recovered/Resolved]
  - Somnambulism [Recovered/Resolved]
  - Disorientation [Recovered/Resolved]
